FAERS Safety Report 9493417 (Version 2)
Quarter: 2013Q4

REPORT INFORMATION
  Report Type: Spontaneous
  Country: US (occurrence: US)
  Receive Date: 20130902
  Receipt Date: 20131010
  Transmission Date: 20140711
  Serious: Yes (Other)
  Sender: FDA-Public Use
  Company Number: US-PFIZER INC-2013251226

PATIENT
  Age: 70 Year
  Sex: Male
  Weight: 88.44 kg

DRUGS (5)
  1. LYRICA [Suspect]
     Indication: DIABETIC NEUROPATHY
     Dosage: 100 MG, 2X/DAY
     Route: 048
     Dates: start: 201304, end: 201307
  2. LYRICA [Suspect]
     Dosage: 100 MG, 1X/DAY
     Route: 048
     Dates: start: 201308
  3. ALLOPURINOL [Concomitant]
     Dosage: UNK, 1X/DAY
  4. GLIPIZIDE [Concomitant]
     Dosage: UNK, 1X/DAY
  5. METFORMIN [Concomitant]
     Dosage: UNK, 1X/DAY

REACTIONS (3)
  - Intentional drug misuse [Unknown]
  - Arthropathy [Unknown]
  - Drug ineffective [Unknown]
